FAERS Safety Report 7993198-X (Version None)
Quarter: 2011Q4

REPORT INFORMATION
  Report Type: 
  Country: None (occurrence: None)
  Receive Date: 20111219
  Receipt Date: 20110721
  Transmission Date: 20120403
  Serious: No
  Sender: FDA-Public Use
  Company Number: US-ASTRAZENECA-2011SE43474

PATIENT
  Age: 64 Year
  Sex: Female
  Weight: 71.7 kg

DRUGS (3)
  1. METFORMIN HCL [Concomitant]
  2. SYNTHROID [Concomitant]
  3. CRESTOR [Suspect]
     Indication: HYPERCHOLESTEROLAEMIA
     Route: 048
     Dates: start: 20110101

REACTIONS (4)
  - WRONG TECHNIQUE IN DRUG USAGE PROCESS [None]
  - CATARACT [None]
  - MYALGIA [None]
  - MUSCULAR WEAKNESS [None]
